FAERS Safety Report 4633028-7 (Version None)
Quarter: 2005Q2

REPORT INFORMATION
  Report Type: 
  Country: None (occurrence: None)
  Receive Date: 20050325
  Receipt Date: 20041207
  Transmission Date: 20051028
  Serious: No
  Sender: FDA-Public Use
  Company Number: USA031051202

PATIENT
  Age: 86 Year
  Sex: Female
  Weight: 61 kg

DRUGS (3)
  1. FORTEO [Suspect]
     Indication: OSTEOPOROSIS
     Dosage: 20 UG DAY
     Dates: start: 20031001
  2. CALCIUM GLUCONATE [Concomitant]
  3. VITAMINS NOS [Concomitant]

REACTIONS (3)
  - FATIGUE [None]
  - GROIN PAIN [None]
  - SOMNOLENCE [None]
